FAERS Safety Report 6205989-6 (Version None)
Quarter: 2009Q2

REPORT INFORMATION
  Report Type: 
  Country: None (occurrence: None)
  Receive Date: 20090527
  Receipt Date: 20090527
  Transmission Date: 20091009
  Serious: Yes (Hospitalization)
  Sender: FDA-Public Use
  Company Number: None

PATIENT
  Age: 46 Year
  Sex: Female
  Weight: 120.2 kg

DRUGS (1)
  1. VALPROIC ACID [Suspect]
     Indication: METASTATIC NEOPLASM
     Dosage: 500MGPOBID
     Route: 048
     Dates: start: 20090126, end: 20090423

REACTIONS (9)
  - ANAEMIA [None]
  - CONDITION AGGRAVATED [None]
  - GENERALISED OEDEMA [None]
  - HYPERTENSION [None]
  - HYPOCALCAEMIA [None]
  - HYPOKALAEMIA [None]
  - PERFORMANCE STATUS DECREASED [None]
  - SWELLING FACE [None]
  - WEIGHT INCREASED [None]
